FAERS Safety Report 17426316 (Version 1)
Quarter: 2020Q1

REPORT INFORMATION
  Report Type: Spontaneous
  Country: FR (occurrence: FR)
  Receive Date: 20200218
  Receipt Date: 20200218
  Transmission Date: 20200409
  Serious: Yes (Life-Threatening, Hospitalization)
  Sender: FDA-Public Use
  Company Number: FR-AUROBINDO-AUR-APL-2020-007870

PATIENT
  Age: 57 Year
  Sex: Male
  Weight: 67 kg

DRUGS (3)
  1. FLUCONAZOLE ARROW [Suspect]
     Active Substance: FLUCONAZOLE
     Indication: PROPHYLAXIS
     Dosage: 400 MILLIGRAM, ONCE A DAY
     Route: 048
     Dates: start: 20200110, end: 20200124
  2. BACTRIM [Suspect]
     Active Substance: SULFAMETHOXAZOLE\TRIMETHOPRIM
     Indication: SEPTIC SHOCK
     Dosage: 4 DOSAGE FORM, ONCE A DAY
     Route: 048
     Dates: start: 20191230, end: 20200124
  3. PIPERACILLIN TAZOBACTAM PA [Suspect]
     Active Substance: PIPERACILLIN SODIUM\TAZOBACTAM SODIUM
     Indication: SEPTIC SHOCK
     Dosage: 4 GRAM, 3 TIMES A DAY,8 HOUR
     Route: 041
     Dates: start: 20191210, end: 20200124

REACTIONS (2)
  - Pyrexia [Recovered/Resolved]
  - Rash [Recovered/Resolved]

NARRATIVE: CASE EVENT DATE: 20200115
